FAERS Safety Report 8073260-6 (Version None)
Quarter: 2012Q1

REPORT INFORMATION
  Report Type: 
  Country: None (occurrence: None)
  Receive Date: 20120126
  Receipt Date: 20120116
  Transmission Date: 20120608
  Serious: Yes (Other)
  Sender: FDA-Public Use
  Company Number: US-JNJFOC-20120107847

PATIENT
  Sex: Female

DRUGS (4)
  1. MOTRIN IB [Suspect]
     Route: 048
  2. ASPIRIN [Interacting]
     Indication: DYSMENORRHOEA
     Route: 065
     Dates: start: 20120115
  3. IBUPROFEN [Interacting]
     Indication: DYSMENORRHOEA
     Route: 065
     Dates: start: 20120115
  4. MOTRIN IB [Suspect]
     Indication: DYSMENORRHOEA
     Route: 048
     Dates: start: 20120115

REACTIONS (6)
  - INCORRECT DOSE ADMINISTERED [None]
  - DRUG INTERACTION [None]
  - SUICIDAL IDEATION [None]
  - ABDOMINAL DISTENSION [None]
  - DRUG ADMINISTRATION ERROR [None]
  - PANIC ATTACK [None]
